FAERS Safety Report 8175197-0 (Version None)
Quarter: 2012Q1

REPORT INFORMATION
  Report Type: 
  Country: None (occurrence: None)
  Receive Date: 20120229
  Receipt Date: 20120224
  Transmission Date: 20120608
  Serious: Yes (Hospitalization)
  Sender: FDA-Public Use
  Company Number: DE-PFIZER INC-2012027510

PATIENT
  Age: 73 Year
  Sex: Male
  Weight: 80.5 kg

DRUGS (3)
  1. CRIZOTINIB [Suspect]
     Indication: NON-SMALL CELL LUNG CANCER
     Dosage: 250 MG, 2X/DAY
     Dates: start: 20120123, end: 20120131
  2. FUROSEMIDE [Concomitant]
     Indication: OEDEMA
     Dosage: UNK
     Dates: start: 20120111
  3. ACETYLCYSTEINE [Concomitant]
     Indication: COUGH
     Dosage: 600 UNK, UNK
     Dates: start: 20111201

REACTIONS (1)
  - SYNCOPE [None]
